FAERS Safety Report 8285705-7 (Version None)
Quarter: 2012Q2

REPORT INFORMATION
  Report Type: 
  Country: None (occurrence: None)
  Receive Date: 20120413
  Receipt Date: 20120404
  Transmission Date: 20120825
  Serious: Yes (Other)
  Sender: FDA-Public Use
  Company Number: CA-ROCHE-1058196

PATIENT
  Sex: Female

DRUGS (6)
  1. XOLAIR [Suspect]
     Route: 058
     Dates: start: 20091230
  2. INFLUENZA VACCINE [Concomitant]
  3. XOLAIR [Suspect]
     Indication: ASTHMA
     Route: 058
     Dates: start: 20080420
  4. XOLAIR [Suspect]
     Route: 058
     Dates: start: 20091001
  5. XOLAIR [Suspect]
     Route: 058
     Dates: start: 20091202
  6. XOLAIR [Suspect]
     Route: 058
     Dates: start: 20100113

REACTIONS (20)
  - LYMPHATIC DISORDER [None]
  - INFLUENZA [None]
  - BRONCHITIS [None]
  - CHEST PAIN [None]
  - COUGH [None]
  - FATIGUE [None]
  - RHINORRHOEA [None]
  - NASAL CONGESTION [None]
  - INFLUENZA LIKE ILLNESS [None]
  - PYREXIA [None]
  - PULMONARY CONGESTION [None]
  - LYMPHADENOPATHY [None]
  - NASOPHARYNGITIS [None]
  - SINUSITIS [None]
  - SINUS HEADACHE [None]
  - RALES [None]
  - OROPHARYNGEAL PAIN [None]
  - HEADACHE [None]
  - HEART RATE INCREASED [None]
  - DYSPNOEA [None]
